FAERS Safety Report 11627677 (Version 1)
Quarter: 2015Q4

REPORT INFORMATION
  Report Type: Spontaneous
  Country: US (occurrence: US)
  Receive Date: 20151014
  Receipt Date: 20151014
  Transmission Date: 20160304
  Serious: No
  Sender: FDA-Public Use
  Company Number: US-009507513-1510USA000645

PATIENT

DRUGS (2)
  1. BCG VACCINE USP [Suspect]
     Active Substance: BCG VACCINE
  2. TICE BCG [Suspect]
     Active Substance: BACILLUS CALMETTE-GUERIN SUBSTRAIN TICE LIVE ANTIGEN
     Indication: BLADDER CANCER

REACTIONS (3)
  - Product name confusion [Unknown]
  - Intercepted medication error [Unknown]
  - No adverse event [Unknown]
